FAERS Safety Report 4745948-3 (Version None)
Quarter: 2005Q3

REPORT INFORMATION
  Report Type: 
  Country: None (occurrence: None)
  Receive Date: 20050816
  Receipt Date: 20050808
  Transmission Date: 20060218
  Serious: Yes (Other)
  Sender: FDA-Public Use
  Company Number: NL-GLAXOSMITHKLINE-B0390621A

PATIENT
  Age: 61 Year
  Sex: Female

DRUGS (6)
  1. LAMOTRIGINE [Suspect]
     Indication: EPILEPSY
     Dosage: 100MG TWICE PER DAY
     Route: 065
     Dates: start: 19990707
  2. DOXYCYCLINE [Suspect]
     Route: 065
  3. DEXTROMETHORPHAN HYDROBROMIDE [Suspect]
     Dosage: 1.5MGML THREE TIMES PER DAY
     Route: 065
     Dates: start: 20050731, end: 20050801
  4. DEPAKENE [Suspect]
     Dosage: 1000MG TWICE PER DAY
     Route: 065
     Dates: start: 19990129
  5. PHENYTOIN [Suspect]
     Route: 065
     Dates: start: 19990129
  6. CALMURID [Concomitant]
     Dosage: 100MGG TWICE PER DAY
     Route: 065
     Dates: start: 19990129

REACTIONS (9)
  - CONVULSION [None]
  - COUGH [None]
  - DRUG INTERACTION [None]
  - EPILEPSY [None]
  - FALL [None]
  - HEADACHE [None]
  - NAUSEA [None]
  - PETIT MAL EPILEPSY [None]
  - URINARY INCONTINENCE [None]
